FAERS Safety Report 4837443-8 (Version None)
Quarter: 2005Q4

REPORT INFORMATION
  Report Type: 
  Country: None (occurrence: None)
  Receive Date: 20051128
  Receipt Date: 20051115
  Transmission Date: 20060501
  Serious: Yes (Other)
  Sender: FDA-Public Use
  Company Number: DE-JNJFOC-20051104546

PATIENT
  Age: 27 Year
  Sex: Female

DRUGS (1)
  1. GYNO-PEVARYL [Suspect]
     Route: 065

REACTIONS (2)
  - INFERTILITY FEMALE [None]
  - REPRODUCTIVE TRACT DISORDER [None]
